FAERS Safety Report 16208366 (Version 2)
Quarter: 2019Q2

REPORT INFORMATION
  Report Type: Spontaneous
  Country: GB (occurrence: GB)
  Receive Date: 20190417
  Receipt Date: 20190423
  Transmission Date: 20190711
  Serious: Yes (Hospitalization)
  Sender: FDA-Public Use
  Company Number: GB-PFIZER INC-2019157190

PATIENT
  Age: 59 Year
  Sex: Female
  Weight: 80.29 kg

DRUGS (19)
  1. VINCRISTINE SULFATE. [Suspect]
     Active Substance: VINCRISTINE SULFATE
     Indication: DIFFUSE LARGE B-CELL LYMPHOMA
     Dosage: 2 MG, EVERY 3 WEEKS
     Route: 042
     Dates: start: 20190215, end: 20190215
  2. PREDNISOLONE. [Concomitant]
     Active Substance: PREDNISOLONE
     Dosage: UNK
  3. CO-TRIMOXAZOLE [SULFAMETHOXAZOLE;TRIMETHOPRIM] [Concomitant]
     Dosage: UNK
  4. SIMVASTATIN. [Concomitant]
     Active Substance: SIMVASTATIN
     Dosage: UNK
  5. OMEPRAZOLE. [Concomitant]
     Active Substance: OMEPRAZOLE
     Dosage: UNK
  6. SALBUTAMOL [Concomitant]
     Active Substance: ALBUTEROL
     Dosage: UNK
  7. PARACETAMOL [Concomitant]
     Active Substance: ACETAMINOPHEN
     Dosage: UNK
  8. RITUXIMAB. [Concomitant]
     Active Substance: RITUXIMAB
     Dosage: UNK
  9. METOCLOPRAMIDE. [Concomitant]
     Active Substance: METOCLOPRAMIDE
     Dosage: UNK
  10. ONDANSETRON [Concomitant]
     Active Substance: ONDANSETRON
     Dosage: UNK
  11. MEROPENEM. [Concomitant]
     Active Substance: MEROPENEM
     Dosage: UNK
  12. CYCLOPHOSPHAMIDE. [Suspect]
     Active Substance: CYCLOPHOSPHAMIDE
     Indication: DIFFUSE LARGE B-CELL LYMPHOMA
     Dosage: 1400 MG, EVERY 3 WEEKS
     Route: 042
     Dates: start: 20190215, end: 20190215
  13. ACICLOVIR [Concomitant]
     Active Substance: ACYCLOVIR
     Dosage: UNK
  14. TIOTROPIUM [Concomitant]
     Active Substance: TIOTROPIUM
     Dosage: UNK
  15. DOXORUBICIN [Suspect]
     Active Substance: DOXORUBICIN
     Indication: DIFFUSE LARGE B-CELL LYMPHOMA
     Dosage: 90 MG, EVERY 3 WEEKS
     Route: 042
     Dates: start: 20190215, end: 20190215
  16. CO-AMOXICLAV PHARMANIAGA [Concomitant]
     Dosage: UNK
  17. ENOXAPARIN [Concomitant]
     Active Substance: ENOXAPARIN
     Dosage: UNK
  18. FILGRASTIM [Concomitant]
     Active Substance: FILGRASTIM
     Dosage: UNK
  19. IBUPROFEN. [Concomitant]
     Active Substance: IBUPROFEN
     Dosage: UNK

REACTIONS (4)
  - Pyrexia [Recovered/Resolved]
  - Nasal congestion [Unknown]
  - Febrile neutropenia [Recovered/Resolved]
  - Rhinitis [Unknown]

NARRATIVE: CASE EVENT DATE: 20190312
